FAERS Safety Report 11812017 (Version 2)
Quarter: 2015Q4

REPORT INFORMATION
  Report Type: Spontaneous
  Country: FR (occurrence: FR)
  Receive Date: 20151208
  Receipt Date: 20151231
  Transmission Date: 20160305
  Serious: Yes (Other)
  Sender: FDA-Public Use
  Company Number: PHHY2015FR158872

PATIENT
  Age: 47 Year
  Sex: Male

DRUGS (3)
  1. AFINITOR [Suspect]
     Active Substance: EVEROLIMUS
     Dosage: 5 MG, QD
     Route: 048
  2. AFINITOR [Suspect]
     Active Substance: EVEROLIMUS
     Indication: NEUROENDOCRINE TUMOUR
     Dosage: 10 MG, QD
     Route: 048
     Dates: start: 20150925
  3. SOMATULINE LP [Concomitant]
     Active Substance: LANREOTIDE ACETATE
     Indication: ENDOCRINE NEOPLASM
     Dosage: 120 MG, QD
     Route: 058
     Dates: start: 2014

REACTIONS (5)
  - Proctalgia [Not Recovered/Not Resolved]
  - Perforated ulcer [Unknown]
  - Anorectal disorder [Not Recovered/Not Resolved]
  - Anorectal ulcer [Recovered/Resolved]
  - Anorectal ulcer [Unknown]

NARRATIVE: CASE EVENT DATE: 201510
